FAERS Safety Report 9475043 (Version 1)
Quarter: 2013Q3

REPORT INFORMATION
  Report Type: Spontaneous
  Country: US (occurrence: None)
  Receive Date: 20130822
  Receipt Date: 20130822
  Transmission Date: 20140515
  Serious: Yes (Disabling, Other)
  Sender: FDA-Public Use
  Company Number: None

PATIENT
  Age: 30 Year
  Sex: Male
  Weight: 105.24 kg

DRUGS (3)
  1. TRAMADOL [Suspect]
  2. APRIPIPRAZOLE [Concomitant]
  3. NUTRITION [Concomitant]

REACTIONS (2)
  - Malnutrition [None]
  - Disturbance in social behaviour [None]
